FAERS Safety Report 6207234-4 (Version None)
Quarter: 2009Q2

REPORT INFORMATION
  Report Type: 
  Country: None (occurrence: None)
  Receive Date: 20090528
  Receipt Date: 20090526
  Transmission Date: 20091009
  Serious: Yes (Death)
  Sender: FDA-Public Use
  Company Number: PHHY2009GB07200

PATIENT
  Sex: Male

DRUGS (3)
  1. GLEEVEC [Suspect]
     Indication: GASTROINTESTINAL STROMAL TUMOUR
     Dosage: 400 MG, UNK
  2. GLEEVEC [Suspect]
     Dosage: 800 MG
  3. SUTENT [Concomitant]

REACTIONS (8)
  - DISEASE PROGRESSION [None]
  - DISEASE RECURRENCE [None]
  - DRUG INEFFECTIVE [None]
  - DRUG RESISTANCE [None]
  - HISTOLOGY ABNORMAL [None]
  - NO THERAPEUTIC RESPONSE [None]
  - RECURRENT CANCER [None]
  - SURGERY [None]
